FAERS Safety Report 17247007 (Version 2)
Quarter: 2020Q1

REPORT INFORMATION
  Report Type: Spontaneous
  Country: US (occurrence: US)
  Receive Date: 20200108
  Receipt Date: 20200117
  Transmission Date: 20200409
  Serious: No
  Sender: FDA-Public Use
  Company Number: US-AMGEN-USASP2020000513

PATIENT
  Age: 72 Year
  Sex: Male

DRUGS (2)
  1. REPATHA [Suspect]
     Active Substance: EVOLOCUMAB
     Indication: HIGH DENSITY LIPOPROTEIN INCREASED
     Dosage: 140 MILLIGRAM
     Route: 065
  2. REPATHA [Suspect]
     Active Substance: EVOLOCUMAB
     Dosage: UNK
     Route: 065

REACTIONS (3)
  - Injection site vesicles [Unknown]
  - Accidental exposure to product [Unknown]
  - Injection site haemorrhage [Unknown]

NARRATIVE: CASE EVENT DATE: 20200102
